FAERS Safety Report 8757946 (Version 2)
Quarter: 2012Q4

REPORT INFORMATION
  Report Type: 
  Country: US (occurrence: US)
  Receive Date: 20120828
  Receipt Date: 20120828
  Transmission Date: 20130627
  Serious: Yes (Hospitalization, Other)
  Sender: FDA-Public Use
  Company Number: US-ASTELLAS-2011US008023

PATIENT

DRUGS (10)
  1. PROGRAF [Suspect]
     Indication: HEART TRANSPLANT
     Dosage: 1 mg, tid
     Route: 048
     Dates: start: 20031022
  2. PROGRAF [Suspect]
     Dosage: 1.5 mg, UID/QD
     Route: 048
     Dates: start: 20031022
  3. UNSPECIFIED INGREDIENT [Suspect]
     Indication: PRODUCT USED FOR UNKNOWN INDICATION
     Dosage: UNK
     Route: 065
  4. LASIX                              /00032601/ [Suspect]
     Indication: DIURETIC THERAPY
     Dosage: 80 mg, UID/QD
     Route: 048
     Dates: start: 20031022
  5. VALCYTE [Concomitant]
     Indication: PRODUCT USED FOR UNKNOWN INDICATION
     Dosage: 450 mg, bid
     Route: 048
     Dates: start: 2009
  6. PREDNISONE [Concomitant]
     Indication: HEART TRANSPLANT
     Dosage: 5 mg, UID/QD
     Route: 048
     Dates: start: 20031022
  7. COUMADIN /00014802/ [Concomitant]
     Indication: ANTICOAGULANT THERAPY
     Dosage: 5 mg, UID/QD
     Route: 048
     Dates: start: 1984
  8. ALLOPURINOL [Concomitant]
     Indication: GOUT
     Dosage: 100 mg, UID/QD
     Route: 048
     Dates: start: 2004
  9. GABAPENTIN [Concomitant]
     Indication: PAIN
     Dosage: 100 mg, UID/QD
     Route: 048
     Dates: start: 201204
  10. CELLCEPT                           /01275102/ [Concomitant]
     Indication: HEART TRANSPLANT
     Dosage: 1500 mg, bid
     Route: 048
     Dates: start: 20031022

REACTIONS (10)
  - Drug ineffective [Unknown]
  - Lumbar vertebral fracture [Unknown]
  - Cardiac failure [Unknown]
  - Convulsion [Unknown]
  - Pneumonia [Unknown]
  - Heart transplant rejection [Unknown]
  - Adverse drug reaction [Unknown]
  - Rash [Unknown]
  - Headache [Unknown]
  - Insomnia [Unknown]
